FAERS Safety Report 19072028 (Version 1)
Quarter: 2021Q1

REPORT INFORMATION
  Report Type: Spontaneous
  Country: US (occurrence: US)
  Receive Date: 20210329
  Receipt Date: 20210329
  Transmission Date: 20210420
  Serious: Yes (Life-Threatening, Hospitalization)
  Sender: FDA-Public Use
  Company Number: None

PATIENT
  Age: 64 Year
  Sex: Male

DRUGS (1)
  1. LITHIUM. [Suspect]
     Active Substance: LITHIUM

REACTIONS (6)
  - White blood cell count decreased [None]
  - Aspartate aminotransferase increased [None]
  - Toxicity to various agents [None]
  - COVID-19 [None]
  - Hypoxia [None]
  - International normalised ratio increased [None]
